FAERS Safety Report 16859884 (Version 1)
Quarter: 2019Q3

REPORT INFORMATION
  Report Type: Spontaneous
  Country: US (occurrence: US)
  Receive Date: 20190805
  Receipt Date: 20190805
  Transmission Date: 20191005
  Serious: No
  Sender: FDA-Public Use
  Company Number: None

PATIENT
  Age: 56 Year
  Sex: Female

DRUGS (1)
  1. BENLYSTA [Suspect]
     Active Substance: BELIMUMAB
     Indication: SYSTEMIC LUPUS ERYTHEMATOSUS
     Dosage: OTHER
     Route: 058
     Dates: start: 201712

REACTIONS (4)
  - Fatigue [None]
  - Therapy cessation [None]
  - Lethargy [None]
  - Insurance issue [None]

NARRATIVE: CASE EVENT DATE: 20190731
